FAERS Safety Report 12869302 (Version 4)
Quarter: 2017Q4

REPORT INFORMATION
  Report Type: Spontaneous
  Country: JP (occurrence: JP)
  Receive Date: 20161021
  Receipt Date: 20171127
  Transmission Date: 20180320
  Serious: Yes (Hospitalization)
  Sender: FDA-Public Use
  Company Number: JP-ABBVIE-16P-087-1759966-00

PATIENT
  Age: 9 Year
  Sex: Female
  Weight: 48.4 kg

DRUGS (2)
  1. LEUPRORELIN ACETATE [Suspect]
     Active Substance: LEUPROLIDE ACETATE
     Dosage: 1.50 MG, Q4WEEKS
     Route: 058
     Dates: start: 20161104
  2. LEUPRORELIN ACETATE [Suspect]
     Active Substance: LEUPROLIDE ACETATE
     Indication: PRECOCIOUS PUBERTY
     Dosage: 1.88 MG, Q4WEEKS
     Route: 058
     Dates: start: 20161007, end: 20161007

REACTIONS (2)
  - Ovarian haemorrhage [Recovering/Resolving]
  - Genital haemorrhage [Unknown]

NARRATIVE: CASE EVENT DATE: 20161010
